FAERS Safety Report 18699200 (Version 1)
Quarter: 2021Q1

REPORT INFORMATION
  Report Type: Spontaneous
  Country: US (occurrence: US)
  Receive Date: 20210104
  Receipt Date: 20210104
  Transmission Date: 20210419
  Serious: No
  Sender: FDA-Public Use
  Company Number: US-PFIZER INC-2019474792

PATIENT
  Age: 74 Year
  Sex: Male

DRUGS (3)
  1. TORISEL [Suspect]
     Active Substance: TEMSIROLIMUS
     Indication: PANCREATIC CARCINOMA
     Dosage: 25 MG/ML EVERY TWO WEEKS
  2. TORISEL [Suspect]
     Active Substance: TEMSIROLIMUS
     Indication: NEUROENDOCRINE TUMOUR
     Dosage: 18 MG, EVERY 3 WEEKS, [18 MG (25 MG/ML), EVERY 3 WEEKS]
     Route: 042
  3. TORISEL [Suspect]
     Active Substance: TEMSIROLIMUS
     Dosage: 25 MG, EVERY 3 WEEKS(1 VIAL EVERY 3 WEEKS)

REACTIONS (5)
  - Poor quality product administered [Unknown]
  - Product storage error [Unknown]
  - Product dispensing error [Unknown]
  - Off label use [Unknown]
  - Neoplasm progression [Unknown]

NARRATIVE: CASE EVENT DATE: 20201007
